FAERS Safety Report 9057295 (Version 6)
Quarter: 2013Q3

REPORT INFORMATION
  Report Type: Spontaneous
  Country: GB (occurrence: GB)
  Receive Date: 20130131
  Receipt Date: 20130806
  Transmission Date: 20140515
  Serious: Yes (Other)
  Sender: FDA-Public Use
  Company Number: GB-GLAXOSMITHKLINE-B0861772A

PATIENT
  Age: 64 Year
  Sex: Male

DRUGS (7)
  1. AVANDIA [Suspect]
     Indication: TYPE 2 DIABETES MELLITUS
     Dosage: 4MG PER DAY
     Route: 065
     Dates: start: 20060609
  2. GLICLAZIDE [Concomitant]
  3. AQUEOUS CREAM [Concomitant]
  4. GLUCOSAMINE [Concomitant]
  5. SOFTCLIX [Concomitant]
  6. AMOROLFINE [Concomitant]
  7. ASPIRIN [Concomitant]

REACTIONS (8)
  - Acute myocardial infarction [Recovered/Resolved]
  - Coronary arterial stent insertion [Recovered/Resolved]
  - Electrocardiogram T wave inversion [Recovered/Resolved]
  - Diabetic retinopathy [Unknown]
  - Myocardial ischaemia [Recovered/Resolved]
  - Chest pain [Recovered/Resolved]
  - Dyspnoea [Not Recovered/Not Resolved]
  - Cold sweat [Recovered/Resolved]
